FAERS Safety Report 11193713 (Version 1)
Quarter: 2015Q2

REPORT INFORMATION
  Report Type: Spontaneous
  Country: US (occurrence: US)
  Receive Date: 20150616
  Receipt Date: 20150616
  Transmission Date: 20150821
  Serious: No
  Sender: FDA-Public Use
  Company Number: US-TAKEDA-2014MPI002195

PATIENT
  Sex: Male
  Weight: 75.8 kg

DRUGS (1)
  1. VELCADE [Suspect]
     Active Substance: BORTEZOMIB
     Indication: PLASMA CELL MYELOMA
     Dosage: 2.5 MG, DAYS 1, 4, 8, AND 11 (EVERY 21 DAYS)
     Route: 058

REACTIONS (1)
  - Rash [Unknown]
